FAERS Safety Report 26044655 (Version 1)
Quarter: 2025Q4

REPORT INFORMATION
  Report Type: Spontaneous
  Country: US (occurrence: US)
  Receive Date: 20251114
  Receipt Date: 20251114
  Transmission Date: 20260118
  Serious: No
  Sender: ALVOGEN
  Company Number: US-ALVOGEN-2024095769

PATIENT
  Sex: Male

DRUGS (1)
  1. TERIPARATIDE [Suspect]
     Active Substance: TERIPARATIDE
     Indication: Product used for unknown indication

REACTIONS (3)
  - Chills [Unknown]
  - Malaise [Unknown]
  - Device use issue [Unknown]

NARRATIVE: CASE EVENT DATE: 20241001
